FAERS Safety Report 7386579-9 (Version None)
Quarter: 2011Q1

REPORT INFORMATION
  Report Type: 
  Country: None (occurrence: None)
  Receive Date: 20110331
  Receipt Date: 20110322
  Transmission Date: 20110831
  Serious: Yes (Life-Threatening)
  Sender: FDA-Public Use
  Company Number: US-ROCHE-751751

PATIENT
  Sex: Female

DRUGS (2)
  1. PEGASYS [Suspect]
     Dosage: FORM:PRE-FILLED SYRINGE
     Route: 058
     Dates: start: 20101129, end: 20110103
  2. COPEGUS [Suspect]
     Route: 048
     Dates: start: 20101129, end: 20110103

REACTIONS (4)
  - RED BLOOD CELL COUNT DECREASED [None]
  - DEPRESSION [None]
  - BLOOD PRESSURE DECREASED [None]
  - ANAEMIA [None]
